FAERS Safety Report 8608584-4 (Version None)
Quarter: 2012Q3

REPORT INFORMATION
  Report Type: 
  Country: None (occurrence: None)
  Receive Date: 20120821
  Receipt Date: 20120813
  Transmission Date: 20120928
  Serious: No
  Sender: FDA-Public Use
  Company Number: US-BAYER-2012-083390

PATIENT
  Age: 59 Year
  Sex: Male

DRUGS (9)
  1. BETASERON [Suspect]
     Dosage: 1 ML, QOD
     Route: 058
  2. LIPITOR [Concomitant]
     Dosage: 10 MG, UNK
  3. ASPIRIN [Concomitant]
     Dosage: 81 UNK, UNK
  4. GABAPENTIN [Concomitant]
     Dosage: 300 MG, UNK
  5. PRIMIDONE [Concomitant]
     Dosage: 50 MG, UNK
  6. VENTOLIN [Concomitant]
     Route: 055
  7. FLEXERIL [Concomitant]
     Dosage: 10 MG, UNK
  8. CELEBREX [Concomitant]
     Dosage: 200 MG, UNK
  9. FENOFIBRATE [Concomitant]
     Dosage: 134 MG, UNK

REACTIONS (2)
  - APHONIA [None]
  - COUGH [None]
